FAERS Safety Report 20029955 (Version 19)
Quarter: 2025Q4

REPORT INFORMATION
  Report Type: Spontaneous
  Country: US (occurrence: US)
  Receive Date: 20211103
  Receipt Date: 20251119
  Transmission Date: 20260118
  Serious: Yes (Other)
  Sender: PFIZER
  Company Number: US-PFIZER INC-2021548148

PATIENT
  Age: 68 Year
  Sex: Female

DRUGS (16)
  1. XELJANZ [Suspect]
     Active Substance: TOFACITINIB CITRATE
     Indication: Crohn^s disease
     Dosage: 5 MG
  2. XELJANZ [Suspect]
     Active Substance: TOFACITINIB CITRATE
     Indication: Colitis ulcerative
     Dosage: 5 MG, 2X/DAY
  3. XELJANZ [Suspect]
     Active Substance: TOFACITINIB CITRATE
     Dosage: 10 MG, 1X/DAY
  4. XELJANZ [Suspect]
     Active Substance: TOFACITINIB CITRATE
     Dosage: 5 MG
  5. ALLOPURINOL [Concomitant]
     Active Substance: ALLOPURINOL
     Dosage: UNK
  6. ATORVASTATIN [Concomitant]
     Active Substance: ATORVASTATIN
     Dosage: UNK
  7. FAMOTIDINE [Concomitant]
     Active Substance: FAMOTIDINE
     Dosage: UNK
  8. GENTAMICIN [Concomitant]
     Active Substance: GENTAMICIN
     Dosage: UNK
  9. IPRATROPIUM [Concomitant]
     Active Substance: IPRATROPIUM
     Dosage: UNK
  10. HYOSCYAMINE [Concomitant]
     Active Substance: HYOSCYAMINE
     Dosage: UNK
  11. LEXAPRO [Concomitant]
     Active Substance: ESCITALOPRAM OXALATE
     Dosage: UNK
  12. LOPERAMIDE [Concomitant]
     Active Substance: LOPERAMIDE
     Dosage: UNK
  13. NUCYNTA [Concomitant]
     Active Substance: TAPENTADOL HYDROCHLORIDE
     Dosage: UNK
  14. NYSTATIN [Concomitant]
     Active Substance: NYSTATIN
     Dosage: UNK
  15. VALACYCLOVIR [Concomitant]
     Active Substance: VALACYCLOVIR HYDROCHLORIDE
     Dosage: UNK
  16. VERZENIO [Concomitant]
     Active Substance: ABEMACICLIB
     Dosage: UNK

REACTIONS (16)
  - Condition aggravated [Not Recovered/Not Resolved]
  - Gastrointestinal haemorrhage [Unknown]
  - Spinal operation [Unknown]
  - Intentional product misuse [Unknown]
  - Anxiety [Unknown]
  - Flushing [Unknown]
  - Gastrointestinal disorder [Unknown]
  - Road traffic accident [Unknown]
  - Pain [Not Recovered/Not Resolved]
  - Illness [Unknown]
  - Abdominal pain upper [Unknown]
  - Gastrointestinal mucosal disorder [Unknown]
  - Back pain [Not Recovered/Not Resolved]
  - Fatigue [Unknown]
  - Feeling abnormal [Unknown]
  - Condition aggravated [Not Recovered/Not Resolved]

NARRATIVE: CASE EVENT DATE: 20240101
